FAERS Safety Report 10955081 (Version 1)
Quarter: 2015Q1

REPORT INFORMATION
  Report Type: Spontaneous
  Country: US (occurrence: US)
  Receive Date: 20150325
  Receipt Date: 20150325
  Transmission Date: 20150721
  Serious: No
  Sender: FDA-Public Use
  Company Number: US-AMGEN-USASP2015027220

PATIENT
  Age: 7 Day
  Sex: Male

DRUGS (3)
  1. ENBREL [Suspect]
     Active Substance: ETANERCEPT
     Indication: EXPOSURE DURING PREGNANCY
     Dosage: 50 MG, QWK
     Route: 063
     Dates: start: 201012
  2. CETRIZINE [Concomitant]
     Active Substance: CETIRIZINE HYDROCHLORIDE
     Dosage: 5 ML, QD
     Route: 048
     Dates: start: 201409
  3. PATADAY [Concomitant]
     Active Substance: OLOPATADINE HYDROCHLORIDE
     Dosage: UNK UNK, QD
     Route: 047
     Dates: start: 201502

REACTIONS (3)
  - Gastroenteritis viral [Unknown]
  - Eczema [Unknown]
  - Ear infection [Unknown]

NARRATIVE: CASE EVENT DATE: 20140310
